FAERS Safety Report 9032514 (Version 16)
Quarter: 2015Q4

REPORT INFORMATION
  Report Type: Report from Study
  Country: CA (occurrence: CA)
  Receive Date: 20130125
  Receipt Date: 20151204
  Transmission Date: 20160305
  Serious: Yes (Hospitalization, Other)
  Sender: FDA-Public Use
  Company Number: CA-ASTRAZENECA-2012SE45322

PATIENT
  Age: 51 Year
  Sex: Female
  Weight: 23.1 kg

DRUGS (57)
  1. CAPRELSA [Suspect]
     Active Substance: VANDETANIB
     Indication: MEDULLARY THYROID CANCER
     Route: 048
     Dates: start: 20120505
  2. CAPRELSA [Suspect]
     Active Substance: VANDETANIB
     Indication: MEDULLARY THYROID CANCER
     Route: 048
     Dates: start: 20120505
  3. CAPRELSA [Suspect]
     Active Substance: VANDETANIB
     Indication: MEDULLARY THYROID CANCER
     Route: 048
     Dates: start: 20120505, end: 20121222
  4. CAPRELSA [Suspect]
     Active Substance: VANDETANIB
     Indication: MEDULLARY THYROID CANCER
     Route: 048
     Dates: start: 20130114, end: 20130119
  5. IMODIUM [Concomitant]
     Active Substance: LOPERAMIDE HYDROCHLORIDE
  6. SYNTHROID [Concomitant]
     Active Substance: LEVOTHYROXINE SODIUM
  7. FLORINEF ACETATE [Concomitant]
     Active Substance: FLUDROCORTISONE ACETATE
     Dosage: 0.1MG ONCE A DAY 1 AND 1/2 TAB
  8. CENTRUM SELECT [Concomitant]
     Active Substance: VITAMINS
     Dosage: 50 PLUS, 1 TAB OD
  9. MOTRIN IB [Concomitant]
     Active Substance: IBUPROFEN
     Dosage: 200MG GEL CAP Q6H PRN
  10. ESTRACE [Concomitant]
     Active Substance: ESTRADIOL
  11. ESTRACE [Concomitant]
     Active Substance: ESTRADIOL
  12. ADVIL X FORT [Concomitant]
     Dosage: 400 MG PRN
  13. CAPRELSA [Suspect]
     Active Substance: VANDETANIB
     Indication: MEDULLARY THYROID CANCER
     Route: 048
     Dates: start: 20130703
  14. TYLENOL COMPLETE [Concomitant]
     Dosage: PRN
  15. LOMOTIL [Concomitant]
     Active Substance: ATROPINE SULFATE\DIPHENOXYLATE HYDROCHLORIDE
     Dosage: 2.5MG/0.025MG PRN
  16. CORTEF [Concomitant]
     Active Substance: HYDROCORTISONE
     Dosage: 15 MG QAM AND 5 MG QPM
  17. CAPRELSA [Suspect]
     Active Substance: VANDETANIB
     Indication: MEDULLARY THYROID CANCER
     Route: 048
     Dates: start: 20140117, end: 20140414
  18. SUDAFED [Concomitant]
     Active Substance: PSEUDOEPHEDRINE HYDROCHLORIDE
     Dosage: 1 OD PRN
  19. MAGNESIUM [Concomitant]
     Active Substance: MAGNESIUM
  20. CAPRELSA [Suspect]
     Active Substance: VANDETANIB
     Indication: MEDULLARY THYROID CANCER
     Route: 048
     Dates: end: 20130609
  21. CAPRELSA [Suspect]
     Active Substance: VANDETANIB
     Indication: MEDULLARY THYROID CANCER
     Route: 048
     Dates: end: 201308
  22. CAPRELSA [Suspect]
     Active Substance: VANDETANIB
     Indication: MEDULLARY THYROID CANCER
     Route: 048
     Dates: start: 20120505, end: 20140101
  23. CAPRELSA [Suspect]
     Active Substance: VANDETANIB
     Indication: MEDULLARY THYROID CANCER
     Route: 048
     Dates: start: 20120505, end: 20151019
  24. CAPRELSA [Suspect]
     Active Substance: VANDETANIB
     Indication: MEDULLARY THYROID CANCER
     Route: 048
     Dates: start: 20151106
  25. DEXAMETHASONE. [Concomitant]
     Active Substance: DEXAMETHASONE
     Dates: end: 20130528
  26. CALCIUM [Concomitant]
     Active Substance: CALCIUM
  27. APO-MEDROXY [Concomitant]
  28. TOBRADEX [Concomitant]
     Active Substance: DEXAMETHASONE\TOBRAMYCIN
  29. CAPRELSA [Suspect]
     Active Substance: VANDETANIB
     Indication: MEDULLARY THYROID CANCER
     Route: 048
     Dates: start: 20120505
  30. CAPRELSA [Suspect]
     Active Substance: VANDETANIB
     Indication: MEDULLARY THYROID CANCER
     Route: 048
     Dates: start: 20130104, end: 20130114
  31. CAPRELSA [Suspect]
     Active Substance: VANDETANIB
     Indication: MEDULLARY THYROID CANCER
     Route: 048
     Dates: start: 20130501
  32. CAPRELSA [Suspect]
     Active Substance: VANDETANIB
     Indication: MEDULLARY THYROID CANCER
     Route: 048
     Dates: start: 20120505, end: 20140801
  33. DEXAMETHASONE. [Concomitant]
     Active Substance: DEXAMETHASONE
  34. VITAMIN D [Concomitant]
     Active Substance: CHOLECALCIFEROL
  35. CAPRELSA [Suspect]
     Active Substance: VANDETANIB
     Indication: MEDULLARY THYROID CANCER
     Route: 048
     Dates: start: 20120505, end: 20120702
  36. CAPRELSA [Suspect]
     Active Substance: VANDETANIB
     Indication: MEDULLARY THYROID CANCER
     Route: 048
  37. CAPRELSA [Suspect]
     Active Substance: VANDETANIB
     Indication: MEDULLARY THYROID CANCER
     Route: 048
  38. CAPRELSA [Suspect]
     Active Substance: VANDETANIB
     Indication: MEDULLARY THYROID CANCER
     Route: 048
     Dates: end: 20130416
  39. CAPRELSA [Suspect]
     Active Substance: VANDETANIB
     Indication: MEDULLARY THYROID CANCER
     Route: 048
     Dates: start: 20140526
  40. DEXAMETHASONE. [Concomitant]
     Active Substance: DEXAMETHASONE
  41. CETIRIZINE [Concomitant]
     Active Substance: CETIRIZINE HYDROCHLORIDE
     Dosage: 10 MG OD PRN
  42. OTRIVIN [Concomitant]
     Active Substance: XYLOMETAZOLINE
     Dosage: ONE SPRAY IN EACH NOSTRILS QHS
     Route: 045
  43. ZOVIRAX [Concomitant]
     Active Substance: ACYCLOVIR
     Dosage: 50 MG/G, PRN
  44. PROLIA [Concomitant]
     Active Substance: DENOSUMAB
     Indication: BONE PAIN
     Dosage: ONE INJECTION EVENRY SIX MONTHS, 60 MG
  45. PAROXETINE [Concomitant]
     Active Substance: PAROXETINE\PAROXETINE HYDROCHLORIDE
  46. CLONAZEPAM. [Concomitant]
     Active Substance: CLONAZEPAM
  47. PAXIL [Concomitant]
     Active Substance: PAROXETINE HYDROCHLORIDE
  48. PREMARIN [Concomitant]
     Active Substance: ESTROGENS, CONJUGATED
  49. CORTEF [Concomitant]
     Active Substance: HYDROCORTISONE
     Dosage: 100 MG INJECTION PRN
  50. AMOXICILLIN. [Concomitant]
     Active Substance: AMOXICILLIN
     Dosage: TID
     Route: 048
  51. CAPRELSA [Suspect]
     Active Substance: VANDETANIB
     Indication: MEDULLARY THYROID CANCER
     Route: 048
     Dates: start: 20120405, end: 20120629
  52. CAPRELSA [Suspect]
     Active Substance: VANDETANIB
     Indication: MEDULLARY THYROID CANCER
     Route: 048
  53. CAPRELSA [Suspect]
     Active Substance: VANDETANIB
     Indication: MEDULLARY THYROID CANCER
     Route: 048
     Dates: start: 20130221
  54. CAPRELSA [Suspect]
     Active Substance: VANDETANIB
     Indication: MEDULLARY THYROID CANCER
     Route: 048
     Dates: start: 20130508
  55. CAPRELSA [Suspect]
     Active Substance: VANDETANIB
     Indication: MEDULLARY THYROID CANCER
     Route: 048
     Dates: start: 20130810, end: 20130811
  56. ZOMETA [Concomitant]
     Active Substance: ZOLEDRONIC ACID
  57. PREMARIN [Concomitant]
     Active Substance: ESTROGENS, CONJUGATED
     Dates: end: 20130528

REACTIONS (40)
  - Hot flush [Recovered/Resolved]
  - Fatigue [Not Recovered/Not Resolved]
  - Adrenocortical insufficiency acute [Unknown]
  - Swelling face [Recovering/Resolving]
  - Onychoclasis [Unknown]
  - Blood electrolytes abnormal [Unknown]
  - Diarrhoea [Not Recovered/Not Resolved]
  - Alopecia [Not Recovered/Not Resolved]
  - Activities of daily living impaired [Not Recovered/Not Resolved]
  - Oropharyngeal pain [Recovering/Resolving]
  - Abdominal distension [Recovered/Resolved]
  - Nasal congestion [Unknown]
  - Upper-airway cough syndrome [Unknown]
  - Eye infection [Recovering/Resolving]
  - Drug dose omission [Unknown]
  - Cough [Recovering/Resolving]
  - Decreased appetite [Not Recovered/Not Resolved]
  - Trichorrhexis [Not Recovered/Not Resolved]
  - Pyrexia [Unknown]
  - Red blood cell count decreased [Unknown]
  - Irritability [Not Recovered/Not Resolved]
  - Bone pain [Not Recovered/Not Resolved]
  - Herpes dermatitis [Not Recovered/Not Resolved]
  - Malaise [Recovered/Resolved]
  - Blood magnesium decreased [Unknown]
  - Eye disorder [Not Recovered/Not Resolved]
  - Eyelid oedema [Not Recovered/Not Resolved]
  - Vision blurred [Not Recovered/Not Resolved]
  - Pain [Not Recovered/Not Resolved]
  - Rhinorrhoea [Not Recovered/Not Resolved]
  - Oral infection [Unknown]
  - Gastroenteritis viral [Not Recovered/Not Resolved]
  - Adrenal insufficiency [Unknown]
  - Chills [Not Recovered/Not Resolved]
  - Hyperhidrosis [Not Recovered/Not Resolved]
  - Respiratory tract congestion [Recovering/Resolving]
  - Oral pustule [Not Recovered/Not Resolved]
  - Sinusitis [Recovered/Resolved]
  - Oral pain [Recovering/Resolving]
  - Paranasal sinus discomfort [Unknown]

NARRATIVE: CASE EVENT DATE: 2012
